FAERS Safety Report 8196763-2 (Version None)
Quarter: 2012Q1

REPORT INFORMATION
  Report Type: 
  Country: None (occurrence: None)
  Receive Date: 20120309
  Receipt Date: 20120228
  Transmission Date: 20120608
  Serious: Yes (Hospitalization, Other)
  Sender: FDA-Public Use
  Company Number: PHHY2012FR017325

PATIENT
  Sex: Female

DRUGS (12)
  1. PRAVASTATIN [Concomitant]
  2. CALCIUM CARBONATE [Concomitant]
  3. DILTIAZEM HCL [Concomitant]
  4. DIDRONEL [Concomitant]
  5. GLUCOPHAGE [Concomitant]
     Indication: DIABETES MELLITUS
     Dosage: UNK
     Dates: end: 20120102
  6. LYRICA [Concomitant]
  7. ACETAMINOPHEN [Concomitant]
  8. VALSARTAN [Suspect]
     Dosage: UNK
     Dates: start: 20111105, end: 20120102
  9. GLYBURIDE [Concomitant]
     Indication: DIABETES MELLITUS
     Dosage: UNK
     Dates: end: 20120102
  10. LANTUS [Concomitant]
     Indication: DIABETES MELLITUS
  11. ALDACTONE [Suspect]
     Indication: OEDEMA PERIPHERAL
     Dosage: 1 DF, BID
     Dates: start: 20111105, end: 20120102
  12. PLAVIX [Concomitant]

REACTIONS (8)
  - HYPONATRAEMIA [None]
  - HYPOCHLORAEMIA [None]
  - BLOOD GLUCOSE INCREASED [None]
  - DIABETES MELLITUS INADEQUATE CONTROL [None]
  - BLOOD BICARBONATE DECREASED [None]
  - RENAL IMPAIRMENT [None]
  - HYPERKALAEMIA [None]
  - HYPERCALCAEMIA [None]
